FAERS Safety Report 9614238 (Version 2)
Quarter: 2013Q4

REPORT INFORMATION
  Report Type: Report from Study
  Country: JP (occurrence: TW)
  Receive Date: 20131011
  Receipt Date: 20131011
  Transmission Date: 20140711
  Serious: Yes (Other)
  Sender: FDA-Public Use
  Company Number: TW-BRISTOL-MYERS SQUIBB COMPANY-16171233

PATIENT
  Age: 40 Year
  Sex: Female

DRUGS (6)
  1. ABILIFY TABS [Suspect]
     Indication: SCHIZOPHRENIA
     Route: 048
     Dates: start: 20110905, end: 20110929
  2. ESTAZOLAM [Concomitant]
  3. LORAZEPAM [Concomitant]
  4. GEMFIBROZIL [Concomitant]
     Dosage: LIPDOWN
  5. FLUPHENAZINE DECANOATE [Concomitant]
  6. SULPIRIDE [Concomitant]

REACTIONS (1)
  - Schizophrenia [Recovered/Resolved]
